FAERS Safety Report 5655057-7 (Version None)
Quarter: 2008Q1

REPORT INFORMATION
  Report Type: 
  Country: None (occurrence: None)
  Receive Date: 20080307
  Receipt Date: 20071109
  Transmission Date: 20080703
  Serious: No
  Sender: FDA-Public Use
  Company Number: A0693625A

PATIENT
  Age: 62 Year
  Sex: Male

DRUGS (9)
  1. REQUIP [Suspect]
     Indication: RESTLESS LEGS SYNDROME
     Dosage: .25MG PER DAY
     Route: 048
     Dates: start: 20071101
  2. LASIX [Concomitant]
  3. POTASSIUM CHLORIDE [Concomitant]
  4. FOLIC ACID [Concomitant]
  5. PROTONIX [Concomitant]
  6. THIAMINE [Concomitant]
  7. LISINOPRIL [Concomitant]
  8. ATIVAN [Concomitant]
  9. PERCOCET [Concomitant]

REACTIONS (3)
  - ARTHRALGIA [None]
  - DIZZINESS [None]
  - MYALGIA [None]
